FAERS Safety Report 9437415 (Version 1)
Quarter: 2013Q3

REPORT INFORMATION
  Report Type: Spontaneous
  Country: US (occurrence: US)
  Receive Date: 20130802
  Receipt Date: 20130802
  Transmission Date: 20140515
  Serious: No
  Sender: FDA-Public Use
  Company Number: US-009507513-1307USA010112

PATIENT
  Age: 31 Year
  Sex: Female

DRUGS (4)
  1. ISENTRESS [Suspect]
     Dosage: TOTAL DAILY DOSE: 800
     Route: 048
  2. LAMIVUDINE [Suspect]
     Dosage: TOTAL DAILY DOSE: 2
     Route: 048
  3. ZIDOVUDINE [Suspect]
     Dosage: TOTAL DAILY DOSE: 2
     Route: 048
  4. LOPINAVIR (+) RITONAVIR [Suspect]
     Dosage: TOTAL DAILY DOSE: 6
     Route: 048

REACTIONS (1)
  - Exposure during pregnancy [Recovered/Resolved]
